FAERS Safety Report 4867615-8 (Version None)
Quarter: 2005Q4

REPORT INFORMATION
  Report Type: 
  Country: None (occurrence: None)
  Receive Date: 20051222
  Receipt Date: 20051212
  Transmission Date: 20060501
  Serious: Yes (Death, Hospitalization)
  Sender: FDA-Public Use
  Company Number: 218426

PATIENT
  Age: 74 Year
  Sex: Female
  Weight: 74.8 kg

DRUGS (13)
  1. AVASTIN [Suspect]
     Indication: HEPATIC NEOPLASM MALIGNANT
     Dosage: 10 MG/KG, Q2W, INTRAVENOUS
     Route: 042
     Dates: start: 20041012, end: 20050927
  2. GEMCITABINE (GEMCITABINE HYDROCHLORIDE) [Suspect]
     Indication: HEPATIC NEOPLASM MALIGNANT
     Dosage: 421.875 MG/M2, Q2W, INTRAVENOUS
     Route: 042
     Dates: start: 20041012, end: 20050927
  3. OXALIPLATIN(OXALIPLATIN) [Suspect]
     Indication: HEPATIC NEOPLASM MALIGNANT
     Dosage: 35.859 MG/M2, Q2W, INTRAVENOUS
     Route: 042
     Dates: start: 20041027, end: 20050927
  4. ATIVAN [Concomitant]
  5. ZOFRAN [Concomitant]
  6. CALCIUM (CALCIUM NOS) [Concomitant]
  7. CLARITIN [Concomitant]
  8. DOXYCYCLINE [Concomitant]
  9. MULTI-VITAMINS [Concomitant]
  10. SYNTHROID [Concomitant]
  11. LASIX [Concomitant]
  12. NORVASC [Concomitant]
  13. CAPTOPRIL [Concomitant]

REACTIONS (9)
  - CEREBRAL ATROPHY [None]
  - ELECTROCARDIOGRAM POOR R-WAVE PROGRESSION [None]
  - HYPOXIA [None]
  - INFECTION [None]
  - MENTAL STATUS CHANGES [None]
  - PNEUMONIA [None]
  - RENAL FAILURE [None]
  - SEPSIS [None]
  - SINUS TACHYCARDIA [None]
